FAERS Safety Report 9088031 (Version 1)
Quarter: 2013Q1

REPORT INFORMATION
  Report Type: Spontaneous
  Country: US (occurrence: US)
  Receive Date: 20130218
  Receipt Date: 20130218
  Transmission Date: 20140127
  Serious: Yes (Other)
  Sender: FDA-Public Use
  Company Number: CHPA2013US001942

PATIENT
  Age: 55 Year
  Sex: Male

DRUGS (1)
  1. EXCEDRIN EXTRA STRENGTH [Suspect]
     Indication: GALLBLADDER PAIN
     Dosage: UNK, UNK
     Route: 048

REACTIONS (4)
  - Haemorrhage [Recovered/Resolved]
  - Dizziness [Recovered/Resolved]
  - Off label use [Unknown]
  - Inappropriate schedule of drug administration [Unknown]
